FAERS Safety Report 6090792-0 (Version None)
Quarter: 2009Q1

REPORT INFORMATION
  Report Type: 
  Country: None (occurrence: None)
  Receive Date: 20090224
  Receipt Date: 20090204
  Transmission Date: 20090719
  Serious: No
  Sender: FDA-Public Use
  Company Number: US-ABBOTT-09P-163-0501800-00

PATIENT
  Sex: Male
  Weight: 94.886 kg

DRUGS (3)
  1. SIMCOR [Suspect]
     Indication: BLOOD CHOLESTEROL INCREASED
     Dosage: 500/20 MG
     Route: 048
     Dates: start: 20081220, end: 20090117
  2. SIMCOR [Suspect]
     Dosage: 500/20 MG
     Dates: start: 20090118, end: 20090127
  3. CELEBREX [Concomitant]
     Indication: PAIN
     Route: 048

REACTIONS (4)
  - ABNORMAL FAECES [None]
  - CHEST PAIN [None]
  - FLATULENCE [None]
  - RASH [None]
